FAERS Safety Report 13769177 (Version 4)
Quarter: 2018Q1

REPORT INFORMATION
  Report Type: Spontaneous
  Country: ES (occurrence: ES)
  Receive Date: 20170719
  Receipt Date: 20180322
  Transmission Date: 20180508
  Serious: Yes (Life-Threatening, Other)
  Sender: FDA-Public Use
  Company Number: ES-PFIZER INC-2015282014

PATIENT
  Sex: Male

DRUGS (5)
  1. COTRIMOXAZOLE [Concomitant]
     Active Substance: SULFAMETHOXAZOLE\TRIMETHOPRIM
     Indication: PNEUMONIA
     Dosage: 5 MG/KG, DAILY
  2. LEVOFLOXACIN. [Suspect]
     Active Substance: LEVOFLOXACIN
     Indication: STENOTROPHOMONAS INFECTION
  3. COTRIMOXAZOLE [Concomitant]
     Active Substance: SULFAMETHOXAZOLE\TRIMETHOPRIM
     Indication: STENOTROPHOMONAS INFECTION
  4. MEROPENEM. [Concomitant]
     Active Substance: MEROPENEM
     Indication: KLEBSIELLA SEPSIS
     Dosage: UNK
  5. LEVOFLOXACIN. [Suspect]
     Active Substance: LEVOFLOXACIN
     Indication: PNEUMONIA
     Dosage: 8.5 MG/KG EVERY 12 H

REACTIONS (3)
  - Shock [Recovered/Resolved]
  - Distributive shock [Recovered/Resolved]
  - Product use issue [Unknown]
